FAERS Safety Report 7158156-6 (Version None)
Quarter: 2010Q4

REPORT INFORMATION
  Report Type: 
  Country: None (occurrence: None)
  Receive Date: 20101214
  Receipt Date: 20100513
  Transmission Date: 20110411
  Serious: No
  Sender: FDA-Public Use
  Company Number: US-ASTRAZENECA-2010SE20045

PATIENT
  Age: 60 Year
  Sex: Female
  Weight: 124.7 kg

DRUGS (7)
  1. CRESTOR [Suspect]
     Indication: DYSLIPIDAEMIA
     Route: 048
     Dates: start: 20100417, end: 20100429
  2. CRESTOR [Suspect]
     Indication: ARTERIOSCLEROSIS CORONARY ARTERY
     Route: 048
     Dates: start: 20100417, end: 20100429
  3. ATACAND [Concomitant]
     Indication: HYPERTENSION
  4. TEGRETOL [Concomitant]
     Indication: BIPOLAR DISORDER
  5. WELLBUTRIN [Concomitant]
     Indication: BIPOLAR DISORDER
  6. CELEXA [Concomitant]
     Indication: BIPOLAR DISORDER
  7. SYNTHROID [Concomitant]
     Indication: THYROID DISORDER

REACTIONS (4)
  - ANGER [None]
  - HUNGER [None]
  - IRRITABILITY [None]
  - MOOD SWINGS [None]
